FAERS Safety Report 20075658 (Version 1)
Quarter: 2021Q4

REPORT INFORMATION
  Report Type: Spontaneous
  Country: US (occurrence: US)
  Receive Date: 20211116
  Receipt Date: 20211116
  Transmission Date: 20220303
  Serious: No
  Sender: FDA-Public Use
  Company Number: US-BEH-2021137884

PATIENT
  Sex: Male

DRUGS (1)
  1. BERINERT [Suspect]
     Active Substance: HUMAN C1-ESTERASE INHIBITOR
     Indication: Hereditary angioedema
     Dosage: 9000 INTERNATIONAL UNIT, QW
     Route: 058
     Dates: start: 20190304

REACTIONS (1)
  - Weight decreased [Unknown]
